FAERS Safety Report 23474052 (Version 4)
Quarter: 2024Q2

REPORT INFORMATION
  Report Type: Spontaneous
  Country: PK (occurrence: PK)
  Receive Date: 20240204
  Receipt Date: 20240528
  Transmission Date: 20240716
  Serious: Yes (Other)
  Sender: FDA-Public Use
  Company Number: PK-PFIZER INC-PV202400000901

PATIENT
  Age: 45 Year
  Sex: Female

DRUGS (10)
  1. ENBREL [Suspect]
     Active Substance: BENZYL ALCOHOL\ETANERCEPT
     Indication: Arthritis
     Dosage: 50 MG, WEEKLY
     Route: 058
     Dates: start: 20220729
  2. ENBREL [Suspect]
     Active Substance: BENZYL ALCOHOL\ETANERCEPT
     Dosage: 50 EVERY 12 DAYS
     Route: 058
     Dates: start: 202401
  3. ENBREL [Suspect]
     Active Substance: BENZYL ALCOHOL\ETANERCEPT
     Dosage: 50 EVERY 14 DAYS
     Route: 058
     Dates: start: 202401
  4. ENBREL [Suspect]
     Active Substance: BENZYL ALCOHOL\ETANERCEPT
     Dosage: 50 MG EVERY 10 DAYS
     Route: 058
  5. RIVOTRIL [Concomitant]
     Active Substance: CLONAZEPAM
     Indication: Product used for unknown indication
     Dosage: 0.5 MG 1+1 NIGHT
     Route: 065
  6. RIVOTRIL [Concomitant]
     Active Substance: CLONAZEPAM
     Dosage: 0.5MG 0+1 NIGHT
  7. PREGY [Concomitant]
     Dosage: 50MG 1+1 MORNING, EVENING
     Route: 065
  8. Gencox [Concomitant]
     Dosage: 60MG 1+0 MORNING, 1 TAB EVERY OTHER DAY AFTER 1WEEK,  AS PER NEED
     Route: 065
  9. Rapicort [Concomitant]
     Dosage: 5MG 1+0 MORNING,  HALF TABLET AFTER 5 DAYS,  STOP AFTER 5 DAYS
     Route: 065
  10. MOXIFLOXACIN [Concomitant]
     Active Substance: MOXIFLOXACIN
     Dosage: 400 MG, DAILY FOR 7 DAYS
     Route: 065

REACTIONS (12)
  - Sjogren^s syndrome [Unknown]
  - Musculoskeletal stiffness [Unknown]
  - Musculoskeletal discomfort [Unknown]
  - Mobility decreased [Unknown]
  - Treatment noncompliance [Unknown]
  - Off label use [Unknown]
  - Intentional product misuse [Unknown]
  - Azotaemia [Unknown]
  - Cough [Unknown]
  - Productive cough [Unknown]
  - C-reactive protein increased [Unknown]
  - Fatigue [Unknown]

NARRATIVE: CASE EVENT DATE: 20240101
